FAERS Safety Report 6328435-0 (Version None)
Quarter: 2009Q3

REPORT INFORMATION
  Report Type: 
  Country: None (occurrence: None)
  Receive Date: 20090825
  Receipt Date: 20090706
  Transmission Date: 20100115
  Serious: No
  Sender: FDA-Public Use
  Company Number: US-ABBOTT-09P-163-0583902-00

PATIENT
  Sex: Female
  Weight: 82.628 kg

DRUGS (5)
  1. SYNTHROID [Suspect]
     Indication: HYPOTHYROIDISM
     Route: 048
     Dates: end: 20090401
  2. SYNTHROID [Suspect]
     Route: 048
     Dates: start: 20090201, end: 20090608
  3. SYNTHROID [Suspect]
     Route: 048
     Dates: start: 20090608
  4. GLIMIPRIMIDE [Concomitant]
     Indication: DIABETES MELLITUS
     Route: 048
  5. ACTOS [Concomitant]
     Indication: DIABETES MELLITUS
     Route: 048

REACTIONS (4)
  - BREAST SWELLING [None]
  - INCORRECT DOSE ADMINISTERED [None]
  - NIPPLE SWELLING [None]
  - WEIGHT INCREASED [None]
